FAERS Safety Report 14530507 (Version 3)
Quarter: 2018Q3

REPORT INFORMATION
  Report Type: Spontaneous
  Country: PL (occurrence: PL)
  Receive Date: 20180214
  Receipt Date: 20180723
  Transmission Date: 20181010
  Serious: Yes (Life-Threatening, Hospitalization)
  Sender: FDA-Public Use
  Company Number: PL-CELGENEUS-POL-20180201242

PATIENT
  Age: 74 Year
  Sex: Female
  Weight: 83 kg

DRUGS (32)
  1. DIUVER [Concomitant]
     Active Substance: TORSEMIDE
     Indication: HYPERTENSION
     Dosage: 5 MILLIGRAM
     Route: 048
     Dates: start: 2007
  2. OMEPRAZOL [Concomitant]
     Active Substance: OMEPRAZOLE
     Indication: GASTRITIS PROPHYLAXIS
     Dosage: 20 MILLIGRAM
     Route: 048
     Dates: start: 20171017
  3. KALIPOZ [Concomitant]
     Active Substance: POTASSIUM CHLORIDE
     Indication: HYPERKALAEMIA
     Dosage: 1173 MILLIGRAM
     Route: 048
     Dates: start: 20171227, end: 20171227
  4. FOMOCAL [Concomitant]
     Indication: INFECTION PROPHYLAXIS
     Dosage: MOUTH WASH
     Route: 048
     Dates: start: 20171225, end: 20180105
  5. FOMOCAL [Concomitant]
     Dosage: MOUTH WASH
     Route: 048
     Dates: start: 20180109
  6. LAKCID [Concomitant]
     Active Substance: LACTOBACILLUS ACIDOPHILUS
     Indication: INFECTION PROPHYLAXIS
     Dosage: 1 TABLET
     Route: 048
     Dates: start: 20180102
  7. MERONEM [Concomitant]
     Active Substance: MEROPENEM
     Indication: PYREXIA
     Dosage: 6 GRAM
     Route: 041
     Dates: start: 20180117, end: 20180221
  8. ENCORTON [Concomitant]
     Active Substance: PREDNISONE
     Indication: THROMBOCYTOPENIA
     Dosage: 30 MILLIGRAM
     Route: 048
     Dates: start: 201712
  9. KALIPOZ [Concomitant]
     Active Substance: POTASSIUM CHLORIDE
     Indication: PROPHYLAXIS
     Dosage: 782 MILLIGRAM
     Route: 048
     Dates: start: 20171228, end: 20180104
  10. CALPEROZ [Concomitant]
     Active Substance: CALCIUM CARBONATE
     Indication: INFECTION PROPHYLAXIS
     Dosage: 1000 MILLIGRAM
     Route: 048
     Dates: start: 20171212
  11. CALPEROZ [Concomitant]
     Active Substance: CALCIUM CARBONATE
     Indication: OSTEOPOROSIS
  12. MILURIT [Concomitant]
     Active Substance: ALLOPURINOL
     Indication: PROPHYLAXIS
     Route: 048
     Dates: start: 201712, end: 20180119
  13. LAKCID [Concomitant]
     Active Substance: LACTOBACILLUS ACIDOPHILUS
     Indication: PROPHYLAXIS
  14. GLUCOPHAGE MR [Concomitant]
     Indication: TYPE 2 DIABETES MELLITUS
     Dosage: 500 MILLIGRAM
     Route: 048
     Dates: start: 2010
  15. METOPROLOL. [Concomitant]
     Active Substance: METOPROLOL
     Indication: HYPERTENSION
     Dosage: 50 MILLIGRAM
     Route: 048
     Dates: start: 2010
  16. KETONAL [Concomitant]
     Active Substance: KETOPROFEN
     Indication: OSTEOARTHRITIS
     Dosage: 50 MILLIGRAM
     Route: 048
     Dates: start: 20171116
  17. DORETA [Concomitant]
     Active Substance: ACETAMINOPHEN\TRAMADOL HYDROCHLORIDE
     Indication: OSTEOARTHRITIS
     Dosage: 75 MILLIGRAM
     Route: 048
     Dates: start: 20171116
  18. DORETA [Concomitant]
     Active Substance: ACETAMINOPHEN\TRAMADOL HYDROCHLORIDE
     Dosage: 650 MILLIGRAM
     Route: 048
     Dates: start: 20171116
  19. FLUCONAZOL [Concomitant]
     Active Substance: FLUCONAZOLE
     Indication: INFECTION PROPHYLAXIS
     Dosage: 100 MILLIGRAM
     Route: 048
     Dates: start: 20171221
  20. CALPEROZ [Concomitant]
     Active Substance: CALCIUM CARBONATE
     Indication: PROPHYLAXIS
  21. AZACITIDINE. [Suspect]
     Active Substance: AZACITIDINE
     Indication: ACUTE MYELOID LEUKAEMIA
     Dosage: 75 MILLIGRAM/SQ. METER
     Route: 058
     Dates: start: 20171219, end: 20171225
  22. VENETOCLAX. [Concomitant]
     Active Substance: VENETOCLAX
     Indication: ACUTE MYELOID LEUKAEMIA
     Route: 065
  23. BIODACYNA [Concomitant]
     Active Substance: AMIKACIN SULFATE
     Indication: INFECTION PROPHYLAXIS
     Dosage: 1 GRAM
     Route: 041
     Dates: start: 20180105
  24. LAKCID [Concomitant]
     Active Substance: LACTOBACILLUS ACIDOPHILUS
     Indication: FUNCTIONAL GASTROINTESTINAL DISORDER
  25. EXACYL [Concomitant]
     Active Substance: TRANEXAMIC ACID
     Indication: HAEMORRHAGE PROPHYLAXIS
  26. CYCLONAMINA [Concomitant]
     Indication: THROMBOCYTOPENIA
     Dosage: 150 MILLIGRAM
     Route: 048
     Dates: start: 20171017
  27. ENCORTON [Concomitant]
     Active Substance: PREDNISONE
     Indication: BONE PAIN
  28. KALIPOZ [Concomitant]
     Active Substance: POTASSIUM CHLORIDE
     Indication: INFECTION PROPHYLAXIS
     Dosage: 2 TABLET
     Route: 048
     Dates: start: 20171212, end: 20171226
  29. PWE (MULTI?ELECTROLYTE LIQUID) + FUROSEMID [Concomitant]
     Indication: PROPHYLAXIS
     Dosage: 1 AMPOULE
     Route: 041
     Dates: start: 20171219, end: 20180122
  30. PRESTARIUM [Concomitant]
     Active Substance: PERINDOPRIL
     Indication: HYPERTENSION
     Dosage: 2.5 MILLIGRAM
     Route: 048
     Dates: start: 20171222
  31. EXACYL [Concomitant]
     Active Substance: TRANEXAMIC ACID
     Indication: THROMBOCYTOPENIA
     Dosage: 500 MILLIGRAM
     Route: 048
     Dates: start: 201712
  32. KALIPOZ [Concomitant]
     Active Substance: POTASSIUM CHLORIDE
     Dosage: 1173 MILLIGRAM
     Route: 048
     Dates: start: 20180105

REACTIONS (1)
  - Thrombocytopenia [Recovered/Resolved]

NARRATIVE: CASE EVENT DATE: 20180126
